FAERS Safety Report 14345474 (Version 1)
Quarter: 2017Q4

REPORT INFORMATION
  Report Type: Spontaneous
  Country: US (occurrence: US)
  Receive Date: 20171230
  Receipt Date: 20171230
  Transmission Date: 20180321
  Serious: No
  Sender: FDA-Public Use
  Company Number: None

PATIENT
  Age: 56 Year
  Sex: Female

DRUGS (1)
  1. STELARA [Suspect]
     Active Substance: USTEKINUMAB
     Indication: PSORIASIS
     Dosage: EVERY 12 WEEKS
     Route: 058
     Dates: start: 20170807

REACTIONS (2)
  - Parosmia [None]
  - Appetite disorder [None]

NARRATIVE: CASE EVENT DATE: 20171117
